FAERS Safety Report 8422960-4 (Version None)
Quarter: 2012Q2

REPORT INFORMATION
  Report Type: 
  Country: None (occurrence: None)
  Receive Date: 20120608
  Receipt Date: 20120601
  Transmission Date: 20120825
  Serious: Yes (Hospitalization)
  Sender: FDA-Public Use
  Company Number: JP-GLAXOSMITHKLINE-B0805747A

PATIENT
  Sex: Female

DRUGS (3)
  1. FLUTICASONE PROPIONATE/SALMETEROL [Suspect]
     Indication: ANALGESIC ASTHMA SYNDROME
     Route: 055
  2. THEO-DUR [Concomitant]
     Route: 048
  3. ONON [Concomitant]
     Route: 048

REACTIONS (5)
  - COUGH [None]
  - DYSPHONIA [None]
  - OROPHARYNGEAL DISCOMFORT [None]
  - PRODUCTIVE COUGH [None]
  - ASTHMA [None]
